FAERS Safety Report 7082883-2 (Version None)
Quarter: 2010Q4

REPORT INFORMATION
  Report Type: 
  Country: None (occurrence: None)
  Receive Date: 20101104
  Receipt Date: 20101022
  Transmission Date: 20110411
  Serious: Yes (Hospitalization, Congenital Anomaly, Other)
  Sender: FDA-Public Use
  Company Number: PHBS2007JP02685

PATIENT
  Sex: Male
  Weight: 8 kg

DRUGS (3)
  1. DIOVAN [Suspect]
     Dosage: UNK, UNK
     Route: 064
     Dates: end: 20070122
  2. CARNACULIN [Concomitant]
     Route: 064
  3. JUVELA [Concomitant]
     Dosage: UNK
     Route: 064

REACTIONS (19)
  - BETA 2 MICROGLOBULIN URINE INCREASED [None]
  - BLOOD UREA INCREASED [None]
  - CRANIOPLASTY [None]
  - DRUG EXPOSURE DURING PREGNANCY [None]
  - DYSPNOEA [None]
  - FOETAL MALFORMATION [None]
  - HYPOSTHENURIA [None]
  - METABOLIC ACIDOSIS [None]
  - NEPHROGENIC DIABETES INSIPIDUS [None]
  - POLYURIA [None]
  - PREMATURE BABY [None]
  - PULMONARY HYPOPLASIA [None]
  - RENAL FAILURE NEONATAL [None]
  - RESPIRATORY DISORDER [None]
  - SKELETON DYSPLASIA [None]
  - SKULL MALFORMATION [None]
  - URINE OSMOLARITY DECREASED [None]
  - WEIGHT GAIN POOR [None]
  - WRIST DEFORMITY [None]
